FAERS Safety Report 16046574 (Version 3)
Quarter: 2020Q2

REPORT INFORMATION
  Report Type: Spontaneous
  Country: CA (occurrence: CA)
  Receive Date: 20190307
  Receipt Date: 20200513
  Transmission Date: 20200713
  Serious: Yes (Hospitalization, Other)
  Sender: FDA-Public Use
  Company Number: CA-SA-2019SA057903

PATIENT
  Age: 59 Year
  Sex: Female

DRUGS (6)
  1. PRAVASTATIN. [Concomitant]
     Active Substance: PRAVASTATIN
     Dosage: 40 MG, QD
     Route: 065
  2. METHOTREXATE. [Suspect]
     Active Substance: METHOTREXATE
     Indication: RHEUMATOID ARTHRITIS
     Dosage: 25 MG, QW
     Route: 048
     Dates: start: 201401, end: 201708
  3. XELJANZ [Suspect]
     Active Substance: TOFACITINIB CITRATE
     Indication: RHEUMATOID ARTHRITIS
     Dosage: 5 MG, BID
     Route: 048
     Dates: start: 20170629
  4. PANTOPRAZOLE [Concomitant]
     Active Substance: PANTOPRAZOLE
     Indication: RHEUMATOID ARTHRITIS
     Dosage: 40 MG, QD
     Route: 065
  5. LEFLUNOMIDE. [Suspect]
     Active Substance: LEFLUNOMIDE
     Indication: RHEUMATOID ARTHRITIS
     Dosage: 20 MG, QD
     Route: 048
     Dates: start: 201701
  6. PLAQUENIL [Suspect]
     Active Substance: HYDROXYCHLOROQUINE SULFATE
     Dosage: UNK UNK, BID
     Route: 065
     Dates: start: 1994

REACTIONS (7)
  - Pain in extremity [Recovering/Resolving]
  - Pulmonary thrombosis [Recovering/Resolving]
  - Thrombosis [Recovering/Resolving]
  - Drug ineffective [Unknown]
  - Osteoarthritis [Recovering/Resolving]
  - Exostosis [Recovering/Resolving]
  - Alanine aminotransferase increased [Unknown]
